FAERS Safety Report 21376277 (Version 1)
Quarter: 2022Q3

REPORT INFORMATION
  Report Type: Spontaneous
  Country: US (occurrence: None)
  Receive Date: 20220923
  Receipt Date: 20220923
  Transmission Date: 20221026
  Serious: Yes (Disabling, Other)
  Sender: FDA-Public Use
  Company Number: None

PATIENT
  Age: 65 Year
  Sex: Female
  Weight: 85.5 kg

DRUGS (13)
  1. LOSARTAN [Suspect]
     Active Substance: LOSARTAN
     Indication: Proteinuria
     Dosage: OTHER QUANTITY : 1 CAPSULE(S);?FREQUENCY : DAILY;?
     Route: 048
     Dates: start: 20220830, end: 20220921
  2. LOSARTAN [Suspect]
     Active Substance: LOSARTAN
     Indication: Hypertension
  3. TRESIBA [Concomitant]
     Active Substance: INSULIN DEGLUDEC
  4. NOVOLOG [Concomitant]
     Active Substance: INSULIN ASPART
  5. FENOFIBRATE [Concomitant]
     Active Substance: FENOFIBRATE
  6. POTASSIUM [Concomitant]
     Active Substance: POTASSIUM
  7. FUROSEMIDE [Concomitant]
     Active Substance: FUROSEMIDE
  8. JARDIANCE [Concomitant]
     Active Substance: EMPAGLIFLOZIN
  9. ROSUVASTATIN [Concomitant]
     Active Substance: ROSUVASTATIN
  10. Dexcom G6 CGM [Concomitant]
  11. ERGOCALCIF [Concomitant]
  12. ZINC [Concomitant]
     Active Substance: ZINC
  13. LOW DOSE ASPIRIN [Concomitant]
     Active Substance: ASPIRIN

REACTIONS (3)
  - Dizziness [None]
  - Movement disorder [None]
  - Fall [None]

NARRATIVE: CASE EVENT DATE: 20220920
